FAERS Safety Report 5160308-1 (Version None)
Quarter: 2006Q4

REPORT INFORMATION
  Report Type: 
  Country: None (occurrence: None)
  Receive Date: 20061129
  Receipt Date: 20061117
  Transmission Date: 20070319
  Serious: Yes (Other)
  Sender: FDA-Public Use
  Company Number: GB-GILEAD-2006-0010698

PATIENT
  Sex: Female

DRUGS (2)
  1. TRUVADA [Suspect]
     Dates: start: 20050201, end: 20061109
  2. EFAVIRENZ [Concomitant]
     Dates: start: 20050201

REACTIONS (3)
  - HYPOKALAEMIA [None]
  - NEPHRITIS INTERSTITIAL [None]
  - NEPHROTIC SYNDROME [None]
